FAERS Safety Report 4985671-3 (Version None)
Quarter: 2006Q2

REPORT INFORMATION
  Report Type: 
  Country: None (occurrence: None)
  Receive Date: 20060428
  Receipt Date: 20050825
  Transmission Date: 20061013
  Serious: No
  Sender: FDA-Public Use
  Company Number: US-GLAXOSMITHKLINE-A0571854A

PATIENT
  Age: 49 Year
  Sex: Male

DRUGS (5)
  1. ZOFRAN [Suspect]
     Indication: PROPHYLAXIS OF NAUSEA AND VOMITING
     Dosage: 4MG FOUR TIMES PER DAY
     Route: 042
     Dates: start: 20050801
  2. REGLAN [Concomitant]
  3. FENTANYL [Concomitant]
  4. CHEMOTHERAPY [Concomitant]
  5. TPN [Concomitant]

REACTIONS (2)
  - NAUSEA [None]
  - VOMITING [None]
